FAERS Safety Report 17552717 (Version 1)
Quarter: 2020Q1

REPORT INFORMATION
  Report Type: Spontaneous
  Country: PT (occurrence: PT)
  Receive Date: 20200317
  Receipt Date: 20200317
  Transmission Date: 20200409
  Serious: Yes (Hospitalization)
  Sender: FDA-Public Use
  Company Number: NVSC2020PT074368

PATIENT
  Age: 52 Year
  Sex: Female

DRUGS (4)
  1. NPH INSULIN [Concomitant]
     Active Substance: INSULIN BEEF
     Dosage: 8 UNITS, QD
     Route: 065
  2. CYCLOSPORINE. [Suspect]
     Active Substance: CYCLOSPORINE
     Indication: TRANSPLANT
  3. CYCLOSPORINE. [Suspect]
     Active Substance: CYCLOSPORINE
     Indication: IMMUNOSUPPRESSION
     Dosage: 75 MG, QD
     Route: 065
  4. NPH INSULIN [Concomitant]
     Active Substance: INSULIN BEEF
     Indication: DIABETES MELLITUS
     Dosage: 24 UNITS, QD
     Route: 065

REACTIONS (1)
  - Hypoglycaemia [Recovering/Resolving]
